FAERS Safety Report 8271805-4 (Version None)
Quarter: 2012Q2

REPORT INFORMATION
  Report Type: 
  Country: None (occurrence: None)
  Receive Date: 20120410
  Receipt Date: 20120328
  Transmission Date: 20120825
  Serious: Yes (Death, Hospitalization)
  Sender: FDA-Public Use
  Company Number: US-MYLANLABS-2011S1022145

PATIENT
  Age: 37 Year
  Sex: Female
  Weight: 119.3 kg

DRUGS (21)
  1. PROMETHAZINE [Concomitant]
  2. IBUPROFEN [Concomitant]
  3. FLUOXETINE [Concomitant]
  4. LIDOCAINE [Concomitant]
     Route: 062
  5. NEOMYCIN POLYMIXIN [Concomitant]
     Dosage: HC-EAR
  6. REGLAN [Concomitant]
     Dosage: 10 - 20 MG QD
  7. MULTI-VITAMIN [Concomitant]
  8. BIOFREEZE /06755101/ [Concomitant]
  9. AMINO ACIDS [Concomitant]
  10. LEVOXYL [Concomitant]
  11. OMEPRAZOLE [Concomitant]
  12. SILVER SULFADIAZINE [Concomitant]
  13. XANAX [Concomitant]
  14. FENTANYL-100 [Suspect]
     Route: 062
     Dates: start: 20091215, end: 20091225
  15. VITAMIN D [Concomitant]
  16. CYTOMEL [Concomitant]
  17. ZOFRAN [Concomitant]
  18. NORCO [Concomitant]
     Dosage: 10MG/325MG; 1 - 2 EVERY 4 HOURS AS NEEDED
  19. ZANAFLEX [Concomitant]
  20. VITAMIN B-12 [Concomitant]
  21. PROVIGIL [Concomitant]

REACTIONS (1)
  - TOXICITY TO VARIOUS AGENTS [None]
